FAERS Safety Report 8235066-4 (Version None)
Quarter: 2012Q1

REPORT INFORMATION
  Report Type: 
  Country: None (occurrence: None)
  Receive Date: 20120326
  Receipt Date: 20120322
  Transmission Date: 20120608
  Serious: Yes (Other)
  Sender: FDA-Public Use
  Company Number: FR-GLAXOSMITHKLINE-B0790407A

PATIENT
  Sex: Female

DRUGS (2)
  1. REQUIP [Suspect]
     Indication: PARKINSON'S DISEASE
     Dosage: 9MG PER DAY
     Route: 048
     Dates: start: 20010701, end: 20060201
  2. PRAMIPEXOLE DIHYDROCHLORIDE [Suspect]
     Indication: PARKINSON'S DISEASE
     Dosage: 2.1MG PER DAY
     Route: 048
     Dates: start: 20060101

REACTIONS (6)
  - IMPULSE-CONTROL DISORDER [None]
  - DEPENDENCE [None]
  - COMPULSIVE SHOPPING [None]
  - PATHOLOGICAL GAMBLING [None]
  - HYPERSEXUALITY [None]
  - BULIMIA NERVOSA [None]
